FAERS Safety Report 8588370-4 (Version None)
Quarter: 2012Q3

REPORT INFORMATION
  Report Type: 
  Country: None (occurrence: None)
  Receive Date: 20120813
  Receipt Date: 20120809
  Transmission Date: 20120928
  Serious: Yes (Death)
  Sender: FDA-Public Use
  Company Number: US-US-EMD SERONO, INC.-7153726

PATIENT
  Sex: Male

DRUGS (2)
  1. SEROSTIM [Suspect]
     Indication: HIV WASTING SYNDROME
     Route: 058
  2. UNSPECIFIED MEDICATION [Concomitant]
     Indication: BIPOLAR I DISORDER

REACTIONS (1)
  - COMPLETED SUICIDE [None]
